FAERS Safety Report 11790396 (Version 1)
Quarter: 2015Q4

REPORT INFORMATION
  Report Type: Spontaneous
  Country: DE (occurrence: DE)
  Receive Date: 20151201
  Receipt Date: 20151201
  Transmission Date: 20160305
  Serious: Yes (Hospitalization)
  Sender: FDA-Public Use
  Company Number: DE-IPCA LABORATORIES LIMITED-IPC201511-000784

PATIENT
  Age: 42 Year
  Sex: Female
  Weight: 57 kg

DRUGS (3)
  1. FUROSEMIDE. [Suspect]
     Active Substance: FUROSEMIDE
  2. FUROSEMIDE. [Suspect]
     Active Substance: FUROSEMIDE
     Indication: WEIGHT CONTROL
  3. FUROSEMIDE. [Suspect]
     Active Substance: FUROSEMIDE

REACTIONS (8)
  - Drug tolerance [Unknown]
  - Oedema [Unknown]
  - Drug abuse [Unknown]
  - Drug dependence [Unknown]
  - Hypokalaemia [Recovered/Resolved]
  - Drug ineffective for unapproved indication [Unknown]
  - Drug withdrawal syndrome [Recovering/Resolving]
  - Nephrocalcinosis [Unknown]
